FAERS Safety Report 6218599-1 (Version None)
Quarter: 2009Q2

REPORT INFORMATION
  Report Type: 
  Country: None (occurrence: None)
  Receive Date: 20090608
  Receipt Date: 20090602
  Transmission Date: 20091009
  Serious: Yes (Other)
  Sender: FDA-Public Use
  Company Number: FR-ASTRAZENECA-2009CG01065

PATIENT
  Age: 28 Year
  Sex: Female

DRUGS (4)
  1. ENTOCORT EC [Suspect]
     Indication: GASTROINTESTINAL DISORDER
     Route: 048
  2. CREON [Concomitant]
  3. LEVOTHYROX [Concomitant]
  4. GESTODENE AND ETHINYL ESTRADIOL [Concomitant]

REACTIONS (1)
  - SUICIDAL IDEATION [None]
